FAERS Safety Report 6380049-2 (Version None)
Quarter: 2009Q3

REPORT INFORMATION
  Report Type: 
  Country: None (occurrence: None)
  Receive Date: 20090928
  Receipt Date: 20090921
  Transmission Date: 20100115
  Serious: Yes (Hospitalization, Other)
  Sender: FDA-Public Use
  Company Number: US-MERCK-0909USA01531

PATIENT
  Sex: Female

DRUGS (1)
  1. FOSAMAX [Suspect]
     Indication: OSTEOPOROSIS
     Route: 048
     Dates: start: 20030101, end: 20040101

REACTIONS (16)
  - ABSCESS [None]
  - ADVERSE DRUG REACTION [None]
  - ANXIETY [None]
  - DENTAL CARIES [None]
  - DEPRESSION [None]
  - EDENTULOUS [None]
  - EXOSTOSIS [None]
  - FEAR [None]
  - FRACTURE [None]
  - GASTROINTESTINAL DISORDER [None]
  - GOUT [None]
  - INJURY [None]
  - MUSCLE SPASMS [None]
  - OSTEONECROSIS [None]
  - RESTLESS LEGS SYNDROME [None]
  - SPINAL FRACTURE [None]
